FAERS Safety Report 12913604 (Version 1)
Quarter: 2016Q4

REPORT INFORMATION
  Report Type: Spontaneous
  Country: US (occurrence: US)
  Receive Date: 20161104
  Receipt Date: 20161104
  Transmission Date: 20170207
  Serious: No
  Sender: FDA-Public Use
  Company Number: US-GREER LABORATORIES, INC.-1059263

PATIENT
  Age: 68 Year
  Sex: Female

DRUGS (7)
  1. MOLDS, RUSTS AND SMUTS, GS ASPERGILLUS MIX [Suspect]
     Active Substance: ASPERGILLUS FLAVUS\ASPERGILLUS FUMIGATUS\ASPERGILLUS NIGER VAR. NIGER\ASPERGILLUS NIDULANS\EUROTIUM AMSTELODAMI
     Route: 058
  2. ANIMAL ALLERGENS, HORSE EPITHELIA, EQUUS CABALLUS [Suspect]
     Active Substance: EQUUS CABALLUS SKIN
     Route: 058
  3. MOLDS, RUSTS AND SMUTS, BOTRYTIS CINEREA [Suspect]
     Active Substance: BOTRYTIS CINEREA
     Route: 058
  4. MOLDS, RUSTS AND SMUTS, CLADOSPORIUM SPHAEROSPERMUM [Suspect]
     Active Substance: CLADOSPORIUM SPHAEROSPERMUM
     Route: 058
  5. ANIMAL ALLERGENS, DOG EPITHELIA, CANIS FAMILIARIS [Suspect]
     Active Substance: CANIS LUPUS FAMILIARIS SKIN
     Route: 058
  6. POLLENS - WEEDS AND GARDEN PLANTS, NETTLE URTICA DIOICA [Suspect]
     Active Substance: URTICA DIOICA POLLEN
     Route: 058
  7. ANIMAL ALLERGENS, HORSE EPITHELIA, EQUUS CABALLUS [Suspect]
     Active Substance: EQUUS CABALLUS SKIN
     Route: 058

REACTIONS (2)
  - Asthma [Recovered/Resolved]
  - Urticaria [Recovered/Resolved]

NARRATIVE: CASE EVENT DATE: 20160921
